FAERS Safety Report 24452013 (Version 1)
Quarter: 2024Q4

REPORT INFORMATION
  Report Type: Spontaneous
  Country: US (occurrence: US)
  Receive Date: 20241017
  Receipt Date: 20241017
  Transmission Date: 20250115
  Serious: No
  Sender: SUNOVION
  Company Number: US-UROVANT SCIENCES GMBH-202312-URV-002406

PATIENT
  Sex: Female

DRUGS (2)
  1. GEMTESA [Suspect]
     Active Substance: VIBEGRON
     Indication: Hypertonic bladder
     Dosage: 75 MG, UNK
     Route: 048
     Dates: start: 202309
  2. GEMTESA [Suspect]
     Active Substance: VIBEGRON
     Dosage: 75 MG, UNK
     Route: 048

REACTIONS (4)
  - Drug ineffective [Unknown]
  - Product dispensing error [Unknown]
  - Product appearance confusion [Unknown]
  - Drug hypersensitivity [Not Recovered/Not Resolved]
